FAERS Safety Report 9497557 (Version 3)
Quarter: 2013Q3

REPORT INFORMATION
  Report Type: Report from Study
  Country: US (occurrence: US)
  Receive Date: 20130904
  Receipt Date: 20130909
  Transmission Date: 20140515
  Serious: Yes (Other)
  Sender: FDA-Public Use
  Company Number: US-PFIZER INC-2013220911

PATIENT
  Sex: 0

DRUGS (4)
  1. IBUPROFEN [Suspect]
     Dosage: 400 MG, 3X/DAY
     Route: 048
  2. RAMIPRIL [Suspect]
     Dosage: 10 MG DAILY
     Route: 065
  3. VANCOMYCIN HCL [Suspect]
     Dosage: 1 G, 1X/DAY
     Route: 042
  4. VANCOMYCIN HCL [Suspect]
     Dosage: 1 G, 2X/DAY
     Route: 042

REACTIONS (2)
  - Hypotension [Unknown]
  - Renal failure acute [Unknown]
